FAERS Safety Report 7658338-0 (Version None)
Quarter: 2011Q3

REPORT INFORMATION
  Report Type: 
  Country: None (occurrence: None)
  Receive Date: 20110802
  Receipt Date: 20110718
  Transmission Date: 20111222
  Serious: Yes (Other)
  Sender: FDA-Public Use
  Company Number: 2010MA005044

PATIENT
  Age: 59 Year
  Sex: Female
  Weight: 126.1 kg

DRUGS (13)
  1. PRILOSEC [Concomitant]
  2. CLONIDINE [Concomitant]
  3. BENIFAR [Concomitant]
  4. HYDROCODONE [Concomitant]
  5. VIOXX [Concomitant]
  6. HYDROCHLOROTHIAZIDE [Concomitant]
  7. CELEBREX [Concomitant]
  8. LEVOXYL [Concomitant]
  9. PREMARIN [Concomitant]
  10. PROTONIX [Concomitant]
  11. CEFIXAMINE [Concomitant]
  12. METOCLOPRAMIDE [Suspect]
     Indication: GASTROOESOPHAGEAL REFLUX DISEASE
     Dosage: 20 MG; HS; PO
     Route: 048
     Dates: start: 20000401, end: 20090301
  13. AUGMENTIN '125' [Concomitant]

REACTIONS (32)
  - STRESS AT WORK [None]
  - TIC [None]
  - APHASIA [None]
  - SOMNOLENCE [None]
  - SMEAR CERVIX ABNORMAL [None]
  - BLOOD TRIGLYCERIDES INCREASED [None]
  - AMNESIA [None]
  - BLOOD GLUCOSE INCREASED [None]
  - HYPERTENSION [None]
  - FATIGUE [None]
  - SINUSITIS [None]
  - THIRST [None]
  - BRONCHITIS [None]
  - TARDIVE DYSKINESIA [None]
  - EXTRAPYRAMIDAL DISORDER [None]
  - ECONOMIC PROBLEM [None]
  - EMOTIONAL DISTRESS [None]
  - SLEEP APNOEA SYNDROME [None]
  - COGNITIVE DISORDER [None]
  - DISTURBANCE IN ATTENTION [None]
  - LEARNING DISORDER [None]
  - DEPRESSION [None]
  - CEREBRAL ISCHAEMIA [None]
  - PAIN [None]
  - OSTEOARTHRITIS [None]
  - BREAST PAIN [None]
  - ERYTHEMA [None]
  - DYSKINESIA [None]
  - HERNIA HIATUS REPAIR [None]
  - RESTLESS LEGS SYNDROME [None]
  - MUSCLE TWITCHING [None]
  - TONGUE DISORDER [None]
